FAERS Safety Report 11858123 (Version 2)
Quarter: 2020Q2

REPORT INFORMATION
  Report Type: Spontaneous
  Country: US (occurrence: US)
  Receive Date: 20151222
  Receipt Date: 20200525
  Transmission Date: 20200713
  Serious: No
  Sender: FDA-Public Use
  Company Number: US-TEVA-567172USA

PATIENT
  Sex: Female

DRUGS (2)
  1. TRAZODONE [Suspect]
     Active Substance: TRAZODONE HYDROCHLORIDE
     Indication: SLEEP DISORDER
  2. TRAZODONE [Suspect]
     Active Substance: TRAZODONE HYDROCHLORIDE
     Indication: DEPRESSION

REACTIONS (9)
  - Diarrhoea [Unknown]
  - Initial insomnia [Unknown]
  - Product substitution issue [Unknown]
  - Somnolence [Unknown]
  - Drug ineffective [Unknown]
  - Sleep disorder [Unknown]
  - Headache [Unknown]
  - Insomnia [Unknown]
  - Poor quality sleep [Unknown]
